FAERS Safety Report 8581324 (Version 2)
Quarter: 2012Q4

REPORT INFORMATION
  Report Type: 
  Country: US (occurrence: US)
  Receive Date: 20120525
  Receipt Date: 20121108
  Transmission Date: 20130627
  Serious: Yes (Hospitalization, Disabling, Other)
  Sender: FDA-Public Use
  Company Number: US-PFIZER INC-2012124595

PATIENT
  Age: 53 Year
  Sex: Female
  Weight: 56.7 kg

DRUGS (5)
  1. EFFEXOR XR [Suspect]
     Indication: GENERALISED ANXIETY DISORDER
     Dosage: 150 mg, daily
  2. EFFEXOR XR [Suspect]
     Indication: DEPRESSION
  3. PAXIL [Suspect]
     Indication: GENERALISED ANXIETY DISORDER
     Dosage: 10 tablet or 20 tablet, daily
  4. PAXIL [Suspect]
     Indication: DEPRESSION
  5. TRAZODONE [Concomitant]
     Indication: SLEEP PROBLEM
     Dosage: 150 mg, daily

REACTIONS (15)
  - Road traffic accident [Recovered/Resolved]
  - Subdural haematoma [Unknown]
  - Multiple fractures [Recovered/Resolved]
  - Rib fracture [Recovered/Resolved]
  - Skull fracture [Recovered/Resolved]
  - Facial bones fracture [Recovered/Resolved]
  - Upper limb fracture [Recovered/Resolved]
  - Head injury [Unknown]
  - Face injury [Not Recovered/Not Resolved]
  - Skeletal injury [Not Recovered/Not Resolved]
  - Eye injury [Unknown]
  - Amnesia [Unknown]
  - Impaired driving ability [Unknown]
  - Weight increased [Unknown]
  - Tremor [Unknown]
